FAERS Safety Report 12495746 (Version 1)
Quarter: 2016Q2

REPORT INFORMATION
  Report Type: Spontaneous
  Country: DK (occurrence: DK)
  Receive Date: 20160624
  Receipt Date: 20160624
  Transmission Date: 20160815
  Serious: Yes (Death, Other)
  Sender: FDA-Public Use
  Company Number: DK-FRESENIUS KABI-FK201603799

PATIENT
  Age: 35 Year
  Sex: Male

DRUGS (6)
  1. GEMCITABINE [Suspect]
     Active Substance: GEMCITABINE\GEMCITABINE HYDROCHLORIDE
     Indication: DUCTAL ADENOCARCINOMA OF PANCREAS
  2. FLUOROURACIL. [Suspect]
     Active Substance: FLUOROURACIL
     Indication: DUCTAL ADENOCARCINOMA OF PANCREAS
  3. CISPLATIN. [Suspect]
     Active Substance: CISPLATIN
     Indication: DUCTAL ADENOCARCINOMA OF PANCREAS
  4. LEUCOVORIN. [Suspect]
     Active Substance: LEUCOVORIN
     Indication: DUCTAL ADENOCARCINOMA OF PANCREAS
  5. IRINOTECAN (MANUFACTURER UNKNOWN) [Suspect]
     Active Substance: IRINOTECAN
     Indication: DUCTAL ADENOCARCINOMA OF PANCREAS
     Route: 065
  6. OXALIPLATIN (MANUFACTURER UNKNOWN) [Suspect]
     Active Substance: OXALIPLATIN
     Indication: DUCTAL ADENOCARCINOMA OF PANCREAS
     Route: 065

REACTIONS (2)
  - Disease progression [Fatal]
  - Therapeutic response decreased [Unknown]
